FAERS Safety Report 9133319 (Version 1)
Quarter: 2013Q1

REPORT INFORMATION
  Report Type: Spontaneous
  Country: CA (occurrence: CA)
  Receive Date: 20130125
  Receipt Date: 20130125
  Transmission Date: 20140127
  Serious: Yes (Other)
  Sender: FDA-Public Use
  Company Number: CA-AMGEN-CANSP2013004973

PATIENT
  Age: 76 Year
  Sex: Female
  Weight: 72.73 kg

DRUGS (1)
  1. PROLIA [Suspect]
     Indication: OSTEOPOROSIS POSTMENOPAUSAL
     Dosage: UNK
     Dates: start: 20120223

REACTIONS (5)
  - Single functional kidney [Unknown]
  - Increased appetite [Unknown]
  - Weight increased [Unknown]
  - Back pain [Unknown]
  - Cystitis [Unknown]
